FAERS Safety Report 14122254 (Version 2)
Quarter: 2018Q1

REPORT INFORMATION
  Report Type: Spontaneous
  Country: US (occurrence: US)
  Receive Date: 20171024
  Receipt Date: 20180123
  Transmission Date: 20180508
  Serious: No
  Sender: FDA-Public Use
  Company Number: US-IMPAX LABORATORIES, INC-2017-IPXL-02398

PATIENT
  Sex: Female
  Weight: 58 kg

DRUGS (14)
  1. TOPROL XL [Concomitant]
     Active Substance: METOPROLOL SUCCINATE
     Indication: BLOOD PRESSURE ABNORMAL
     Dosage: 25 MG, 1 /DAY
     Route: 065
  2. RYTARY [Suspect]
     Active Substance: CARBIDOPA\LEVODOPA
     Indication: PARKINSON^S DISEASE
     Dosage: 23.75/95 MG, THREE CAPSULES THREE TIMES DAILY
     Route: 048
     Dates: start: 20170730, end: 2017
  3. RYTARY [Suspect]
     Active Substance: CARBIDOPA\LEVODOPA
     Dosage: INCREASED DOSE, UNK
     Route: 048
     Dates: start: 2017
  4. CLONAZEPAM. [Concomitant]
     Active Substance: CLONAZEPAM
     Indication: PRODUCT USED FOR UNKNOWN INDICATION
     Dosage: UNK, PRN
     Route: 065
  5. VITAMINS [Concomitant]
     Active Substance: VITAMINS
     Indication: PRODUCT USED FOR UNKNOWN INDICATION
     Dosage: UNK
     Route: 065
  6. ENTACAPONE. [Concomitant]
     Active Substance: ENTACAPONE
     Indication: PARKINSON^S DISEASE
     Dosage: 200 MG, ALONG WITH RYTARY,
     Route: 065
  7. AMLODIPINE BESYLATE. [Concomitant]
     Active Substance: AMLODIPINE BESYLATE
     Indication: PRODUCT USED FOR UNKNOWN INDICATION
     Dosage: 6 MG, 1 /DAY
     Route: 065
  8. HORIZANT [Concomitant]
     Active Substance: GABAPENTIN ENACARBIL
     Indication: PARKINSON^S DISEASE
     Dosage: 600 MG, 1 /DAY
     Route: 065
  9. RYTARY [Suspect]
     Active Substance: CARBIDOPA\LEVODOPA
     Dosage: 23.75/95 MG 3 CAPSULES, 4 /DAY
     Route: 048
     Dates: start: 2017, end: 2017
  10. CARBIDOPA-LEVODOPA ER [Suspect]
     Active Substance: CARBIDOPA\LEVODOPA
     Indication: PARKINSON^S DISEASE
     Dosage: UNK
     Route: 065
  11. REQUIP [Concomitant]
     Active Substance: ROPINIROLE HYDROCHLORIDE
     Indication: PARKINSON^S DISEASE
     Dosage: 4 MG AND 8 MG, 2 /DAY
     Route: 065
  12. LANSOPRAZOLE. [Concomitant]
     Active Substance: LANSOPRAZOLE
     Indication: GASTROOESOPHAGEAL REFLUX DISEASE
     Dosage: 30 MG, 1 /DAY
     Route: 065
  13. PROLIA [Concomitant]
     Active Substance: DENOSUMAB
     Indication: PRODUCT USED FOR UNKNOWN INDICATION
     Dosage: UNK, EVERY 6MO
     Route: 065
  14. CALTRATE [Concomitant]
     Active Substance: CALCIUM CARBONATE
     Indication: MINERAL SUPPLEMENTATION
     Dosage: UNK
     Route: 065

REACTIONS (3)
  - Anxiety [Unknown]
  - Tremor [Unknown]
  - Therapeutic response shortened [Unknown]
